FAERS Safety Report 8456267-6 (Version None)
Quarter: 2012Q2

REPORT INFORMATION
  Report Type: 
  Country: None (occurrence: None)
  Receive Date: 20120621
  Receipt Date: 20120613
  Transmission Date: 20120825
  Serious: Yes (Disabling, Other)
  Sender: FDA-Public Use
  Company Number: FR-BAUSCH-2011BL003024

PATIENT
  Age: 28 Year
  Sex: Female
  Weight: 60 kg

DRUGS (1)
  1. CARTEOL LP 1% COLLYRE EN SOLUTION EN RECIPIENT UNIDOSE [Suspect]
     Indication: GLAUCOMA
     Route: 047
     Dates: start: 20030101, end: 20110701

REACTIONS (6)
  - CAESAREAN SECTION [None]
  - VISUAL FIELD DEFECT [None]
  - CERVIX DISORDER [None]
  - PREMATURE LABOUR [None]
  - NORMAL NEWBORN [None]
  - MATERNAL EXPOSURE DURING PREGNANCY [None]
